FAERS Safety Report 18358836 (Version 1)
Quarter: 2020Q4

REPORT INFORMATION
  Report Type: Spontaneous
  Country: FR (occurrence: FR)
  Receive Date: 20201008
  Receipt Date: 20201008
  Transmission Date: 20210114
  Serious: Yes (Other)
  Sender: FDA-Public Use
  Company Number: FR-TEVA-2020-FR-1835877

PATIENT
  Age: 64 Year
  Sex: Male

DRUGS (3)
  1. GEMCITABINE. [Concomitant]
     Active Substance: GEMCITABINE
  2. NEBIVOLOL. [Concomitant]
     Active Substance: NEBIVOLOL
  3. CARBOPLATINE [Suspect]
     Active Substance: CARBOPLATIN
     Indication: URETERIC CANCER
     Dosage: UNIT DOSE : 260 MG
     Route: 041
     Dates: start: 202006, end: 202006

REACTIONS (3)
  - Hypotension [Recovered/Resolved]
  - Dyspnoea [Recovered/Resolved]
  - Anaphylactic reaction [Recovered/Resolved]

NARRATIVE: CASE EVENT DATE: 202006
